FAERS Safety Report 6123589-3 (Version None)
Quarter: 2009Q1

REPORT INFORMATION
  Report Type: 
  Country: None (occurrence: None)
  Receive Date: 20090317
  Receipt Date: 20090317
  Transmission Date: 20090719
  Serious: Yes (Other)
  Sender: FDA-Public Use
  Company Number: None

PATIENT
  Age: 60 Year
  Sex: Male
  Weight: 82.5547 kg

DRUGS (2)
  1. PROZAC [Suspect]
     Indication: DEPRESSION
     Dosage: 20 MG TID PO
     Route: 048
     Dates: start: 20090211
  2. PROZAC [Suspect]
     Indication: DEPRESSION
     Dosage: 20 MG TID PO
     Route: 048
     Dates: start: 20090312

REACTIONS (1)
  - SEROTONIN SYNDROME [None]
